FAERS Safety Report 8170870 (Version 3)
Quarter: 2013Q1

REPORT INFORMATION
  Report Type: Report from Study
  Country: BE (occurrence: BE)
  Receive Date: 20111006
  Receipt Date: 20130312
  Transmission Date: 20140127
  Serious: Yes (Hospitalization)
  Sender: FDA-Public Use
  Company Number: PHHO2011BE15413

PATIENT
  Age: 42 Year
  Sex: Female
  Weight: 56 kg

DRUGS (11)
  1. BLINDED AFINITOR [Suspect]
     Indication: BREAST CANCER METASTATIC
     Dosage: CODE NOT BROKEN
     Route: 048
     Dates: start: 20110701, end: 20110906
  2. BLINDED NO TREATMENT RECEIVED [Suspect]
     Indication: BREAST CANCER METASTATIC
     Dosage: CODE NOT BROKEN
     Route: 048
     Dates: start: 20110701, end: 20110906
  3. BLINDED PLACEBO [Suspect]
     Indication: BREAST CANCER METASTATIC
     Dosage: CODE NOT BROKEN
     Route: 048
     Dates: start: 20110701, end: 20110906
  4. BLINDED AFINITOR [Suspect]
     Dosage: CODE NOT BROKEN
     Route: 048
     Dates: end: 20120717
  5. BLINDED NO TREATMENT RECEIVED [Suspect]
     Dosage: CODE NOT BROKEN
     Route: 048
     Dates: end: 20120717
  6. BLINDED PLACEBO [Suspect]
     Dosage: CODE NOT BROKEN
     Route: 048
     Dates: end: 20120717
  7. PRAVASTATIN [Suspect]
  8. VINORELBINE [Suspect]
     Indication: BREAST CANCER METASTATIC
     Dosage: 25 MG/M2, QW
     Route: 065
     Dates: start: 20110701, end: 20110906
  9. VINORELBINE [Suspect]
     Dosage: UNK
     Dates: end: 20120620
  10. COMPARATOR TRASTUZUMAB [Suspect]
     Indication: BREAST CANCER METASTATIC
     Dosage: 2 MG/KG, QW
     Route: 065
     Dates: start: 20110701, end: 20110906
  11. COMPARATOR TRASTUZUMAB [Suspect]
     Dosage: UNK
     Dates: end: 20120620

REACTIONS (2)
  - Hepatocellular injury [Recovered/Resolved]
  - Pyrexia [Not Recovered/Not Resolved]
